FAERS Safety Report 7764195-4 (Version None)
Quarter: 2011Q3

REPORT INFORMATION
  Report Type: 
  Country: None (occurrence: None)
  Receive Date: 20110916
  Receipt Date: 20110907
  Transmission Date: 20111222
  Serious: Yes (Disabling)
  Sender: FDA-Public Use
  Company Number: GER/UKI/11/0021080

PATIENT
  Age: 47 Year
  Sex: Female
  Weight: 62 kg

DRUGS (2)
  1. LORATADINE [Concomitant]
  2. TERABINAFINE (TERBINAFINE) [Suspect]
     Indication: ONYCHOMYCOSIS
     Dosage: 250 MG, ORAL
     Route: 048
     Dates: start: 20110728, end: 20110817

REACTIONS (6)
  - VISION BLURRED [None]
  - ADRENAL SUPPRESSION [None]
  - MALAISE [None]
  - HEADACHE [None]
  - PARAESTHESIA [None]
  - BLOOD SODIUM DECREASED [None]
